FAERS Safety Report 9722939 (Version 1)
Quarter: 2013Q4

REPORT INFORMATION
  Report Type: Spontaneous
  Country: US (occurrence: None)
  Receive Date: 20131127
  Receipt Date: 20131127
  Transmission Date: 20140711
  Serious: Yes (Life-Threatening, Hospitalization, Other)
  Sender: FDA-Public Use
  Company Number: None

PATIENT
  Sex: Male

DRUGS (7)
  1. AFINITOR [Suspect]
     Route: 048
     Dates: start: 20130618
  2. VASOTEC [Concomitant]
  3. INDERAL [Concomitant]
  4. DILAUDID [Concomitant]
  5. NORCO [Concomitant]
  6. OXYCONTIN [Concomitant]
  7. PROCHLORPERAZINE [Concomitant]

REACTIONS (2)
  - Chest pain [None]
  - Mass [None]
